FAERS Safety Report 18479655 (Version 1)
Quarter: 2020Q4

REPORT INFORMATION
  Report Type: Spontaneous
  Country: GB (occurrence: GB)
  Receive Date: 20201109
  Receipt Date: 20201109
  Transmission Date: 20210114
  Serious: Yes (Hospitalization)
  Sender: FDA-Public Use
  Company Number: GB-GLAXOSMITHKLINE-GB2020219147

PATIENT
  Age: 73 Year
  Sex: Female

DRUGS (2)
  1. APIXABAN [Suspect]
     Active Substance: APIXABAN
     Indication: PRODUCT USED FOR UNKNOWN INDICATION
     Dosage: UNK
  2. VOLTAROL [Suspect]
     Active Substance: DICLOFENAC SODIUM
     Indication: RESTLESS LEGS SYNDROME
     Dosage: UNK, 100 G

REACTIONS (9)
  - Product use in unapproved indication [Unknown]
  - Dizziness [Unknown]
  - Device use issue [Unknown]
  - Product use issue [Unknown]
  - Ill-defined disorder [Unknown]
  - Hospitalisation [Unknown]
  - Disturbance in attention [Unknown]
  - Extra dose administered [Unknown]
  - Thinking abnormal [Unknown]
